FAERS Safety Report 6838702-X (Version None)
Quarter: 2010Q3

REPORT INFORMATION
  Report Type: 
  Country: None (occurrence: None)
  Receive Date: 20100713
  Receipt Date: 20070619
  Transmission Date: 20110219
  Serious: No
  Sender: FDA-Public Use
  Company Number: US-PFIZER INC-2007035089

PATIENT
  Sex: Male
  Weight: 92.3 kg

DRUGS (6)
  1. CHANTIX [Suspect]
     Indication: SMOKING CESSATION THERAPY
     Route: 048
     Dates: start: 20070201
  2. VYTORIN [Concomitant]
  3. ATENOLOL [Concomitant]
  4. THORAZINE [Concomitant]
     Indication: SLEEP DISORDER
  5. LAMICTAL [Concomitant]
  6. AMBIEN [Concomitant]
     Indication: SLEEP DISORDER

REACTIONS (2)
  - INSOMNIA [None]
  - MUSCLE TWITCHING [None]
